FAERS Safety Report 6783867-1 (Version None)
Quarter: 2010Q2

REPORT INFORMATION
  Report Type: 
  Country: None (occurrence: None)
  Receive Date: 20100622
  Receipt Date: 20100610
  Transmission Date: 20101027
  Serious: Yes (Hospitalization)
  Sender: FDA-Public Use
  Company Number: FR-PFIZER INC-2010073375

PATIENT
  Age: 87 Year
  Sex: Female
  Weight: 77.7 kg

DRUGS (7)
  1. NEURONTIN [Suspect]
     Indication: NEURALGIA
     Dosage: 200 MG, 2X/DAY
     Route: 048
     Dates: start: 20100302, end: 20100504
  2. NEURONTIN [Suspect]
     Dosage: 300 MG, 2X/DAY
     Route: 048
     Dates: start: 20100504
  3. PROPOFAN [Suspect]
     Indication: NEURALGIA
     Dosage: 2 DF, 1X/DAY
     Route: 048
  4. KARDEGIC [Concomitant]
  5. NEXIUM [Concomitant]
  6. PARACETAMOL [Concomitant]
  7. AERIUS [Concomitant]

REACTIONS (4)
  - CONVULSION [None]
  - DYSPNOEA [None]
  - EOSINOPHILIA [None]
  - WHEEZING [None]
